FAERS Safety Report 4763170-1 (Version None)
Quarter: 2005Q3

REPORT INFORMATION
  Report Type: 
  Country: None (occurrence: None)
  Receive Date: 20050907
  Receipt Date: 20050823
  Transmission Date: 20060218
  Serious: Yes (Life-Threatening)
  Sender: FDA-Public Use
  Company Number: 2005S1004957

PATIENT
  Age: 76 Year
  Sex: Female
  Weight: 43.0917 kg

DRUGS (3)
  1. CLONIDINE HCL [Suspect]
     Indication: HYPERTENSION
     Dosage: 0.2 MG;TID;PO
     Route: 048
     Dates: start: 19950101, end: 20050601
  2. VERAPAMIL [Concomitant]
  3. ALPRAZOLAM [Concomitant]

REACTIONS (6)
  - ARTHROPOD BITE [None]
  - FORMICATION [None]
  - OEDEMA PERIPHERAL [None]
  - RASH PRURITIC [None]
  - SKIN ULCER [None]
  - URTICARIA [None]
